FAERS Safety Report 5291074-7 (Version None)
Quarter: 2007Q2

REPORT INFORMATION
  Report Type: 
  Country: None (occurrence: None)
  Receive Date: 20070409
  Receipt Date: 20070407
  Transmission Date: 20071010
  Serious: Yes (Other)
  Sender: FDA-Public Use
  Company Number: IN-GENENTECH-236928

PATIENT
  Sex: Male

DRUGS (1)
  1. LUCENTIS [Suspect]
     Indication: CHOROIDAL NEOVASCULARISATION

REACTIONS (1)
  - CEREBROVASCULAR ACCIDENT [None]
